FAERS Safety Report 11784858 (Version 2)
Quarter: 2016Q1

REPORT INFORMATION
  Report Type: Spontaneous
  Country: US (occurrence: US)
  Receive Date: 20151130
  Receipt Date: 20160219
  Transmission Date: 20160525
  Serious: Yes (Hospitalization)
  Sender: FDA-Public Use
  Company Number: US-SUN PHARMACEUTICAL INDUSTRIES LTD-2015US-106811

PATIENT
  Age: 55 Year
  Sex: Male

DRUGS (13)
  1. CLOZAPINE. [Suspect]
     Active Substance: CLOZAPINE
     Indication: SCHIZOAFFECTIVE DISORDER
     Dosage: 250 MG, QD
     Route: 065
     Dates: start: 2001
  2. DOXORUBICIN [Suspect]
     Active Substance: DOXORUBICIN
     Indication: BURKITT^S LYMPHOMA
     Dosage: UNK
     Route: 065
  3. CYCLOPHOSPHAMIDE. [Suspect]
     Active Substance: CYCLOPHOSPHAMIDE
     Indication: BURKITT^S LYMPHOMA
     Dosage: UNK
     Route: 065
  4. CYTARABINE. [Suspect]
     Active Substance: CYTARABINE
     Indication: BURKITT^S LYMPHOMA
     Dosage: UNK
     Route: 065
  5. VINCRISTINE [Suspect]
     Active Substance: VINCRISTINE
     Indication: BURKITT^S LYMPHOMA
     Dosage: UNK
     Route: 065
  6. ETOPOSIDE. [Suspect]
     Active Substance: ETOPOSIDE
     Indication: BURKITT^S LYMPHOMA
     Dosage: UNK
     Route: 065
  7. IFOSFAMIDE. [Suspect]
     Active Substance: IFOSFAMIDE
     Indication: BURKITT^S LYMPHOMA
     Dosage: UNK
     Route: 065
  8. RITUXIMAB [Suspect]
     Active Substance: RITUXIMAB
     Indication: BURKITT^S LYMPHOMA
     Dosage: UNK
     Route: 065
  9. ZIPRASIDONE. [Concomitant]
     Active Substance: ZIPRASIDONE
     Indication: SCHIZOAFFECTIVE DISORDER
     Dosage: 60 MG, DAILY
     Route: 065
     Dates: start: 2001
  10. METHOTREXATE [Suspect]
     Active Substance: METHOTREXATE
     Indication: BURKITT^S LYMPHOMA
     Dosage: UNK
     Route: 065
  11. MESNA. [Suspect]
     Active Substance: MESNA
     Indication: BURKITT^S LYMPHOMA
     Dosage: UNK
     Route: 065
  12. METHOTREXATE [Suspect]
     Active Substance: METHOTREXATE
     Indication: BURKITT^S LYMPHOMA
     Dosage: UNK
     Route: 065
  13. ZIPRASIDONE. [Concomitant]
     Active Substance: ZIPRASIDONE
     Dosage: 80 MG, BID (TITRATING TO A TARGET DOSE OF 80 MG BY MOUTH TWICE DAILY)
     Route: 048

REACTIONS (2)
  - Febrile neutropenia [Unknown]
  - Agranulocytosis [Unknown]
